FAERS Safety Report 12085852 (Version 2)
Quarter: 2016Q2

REPORT INFORMATION
  Report Type: Spontaneous
  Country: US (occurrence: US)
  Receive Date: 20160217
  Receipt Date: 20160622
  Transmission Date: 20160815
  Serious: Yes (Hospitalization)
  Sender: FDA-Public Use
  Company Number: US-BAYER-2016-030461

PATIENT
  Age: 32 Year
  Sex: Female
  Weight: 63.49 kg

DRUGS (2)
  1. MIRENA [Suspect]
     Active Substance: LEVONORGESTREL
     Indication: CONTRACEPTION
     Dosage: 20 MCG/24HR, CONT
     Route: 015
     Dates: start: 20151105, end: 20151216
  2. JOLIVETTE [Concomitant]
     Active Substance: NORETHINDRONE
     Dosage: 0.35 MG, UNK
     Route: 048

REACTIONS (2)
  - Uterine perforation [None]
  - Pain [None]

NARRATIVE: CASE EVENT DATE: 20151203
